FAERS Safety Report 7544488-6 (Version None)
Quarter: 2011Q2

REPORT INFORMATION
  Report Type: 
  Country: None (occurrence: None)
  Receive Date: 20110613
  Receipt Date: 20110515
  Transmission Date: 20111010
  Serious: Yes (Other)
  Sender: FDA-Public Use
  Company Number: PHHY2011NL33601

PATIENT
  Sex: Male

DRUGS (3)
  1. ZOMETA [Suspect]
     Indication: METASTATIC RENAL CELL CARCINOMA
     Dosage: 4 MG/5ML, ONCE PER 28 DAYS
     Dates: start: 20101104
  2. ZOMETA [Suspect]
     Dosage: 4 MG/5ML, ONCE PER 28 DAYS
     Dates: start: 20110419
  3. ZOMETA [Suspect]
     Dosage: 4 MG/5ML, ONCE PER 28 DAYS
     Dates: start: 20110322

REACTIONS (3)
  - GENERAL PHYSICAL HEALTH DETERIORATION [None]
  - FLUID RETENTION [None]
  - DYSPNOEA [None]
